FAERS Safety Report 16125963 (Version 1)
Quarter: 2019Q1

REPORT INFORMATION
  Report Type: Spontaneous
  Country: RO (occurrence: RO)
  Receive Date: 20190328
  Receipt Date: 20190328
  Transmission Date: 20190418
  Serious: Yes (Other)
  Sender: FDA-Public Use
  Company Number: RO-ASTELLAS-2019US012199

PATIENT
  Age: 86 Year
  Sex: Male

DRUGS (3)
  1. XTANDI [Suspect]
     Active Substance: ENZALUTAMIDE
     Indication: PROSTATE CANCER
     Dosage: 160 MG (4 TABLETS), ONCE DAILY
     Route: 048
     Dates: start: 20190305
  2. PROPRANOLOL [Concomitant]
     Active Substance: PROPRANOLOL HYDROCHLORIDE
     Indication: HEART RATE INCREASED
     Dosage: UNK UNK, THRICE DAILY (1+1+1.5)
     Route: 048
  3. SELEGOS [Concomitant]
     Indication: PARKINSON^S DISEASE
     Dosage: UNK UNK, TWICE DAILY (1+1+0)
     Route: 048

REACTIONS (5)
  - Peripheral swelling [Not Recovered/Not Resolved]
  - Influenza [Unknown]
  - Erythema [Not Recovered/Not Resolved]
  - Ocular hyperaemia [Not Recovered/Not Resolved]
  - Constipation [Unknown]

NARRATIVE: CASE EVENT DATE: 20190315
